FAERS Safety Report 20848105 (Version 1)
Quarter: 2022Q2

REPORT INFORMATION
  Report Type: Report from Study
  Country: US (occurrence: US)
  Receive Date: 20220519
  Receipt Date: 20220519
  Transmission Date: 20220720
  Serious: Yes (Life-Threatening, Other)
  Sender: FDA-Public Use
  Company Number: US-BRISTOL-MYERS SQUIBB COMPANY-2022-036215

PATIENT
  Age: 82 Year
  Sex: Male
  Weight: 108.86 kg

DRUGS (1)
  1. REVLIMID [Suspect]
     Active Substance: LENALIDOMIDE
     Indication: Plasma cell myeloma
     Dosage: DAYS 1-21, 28 DAYS CYCLE
     Route: 048
     Dates: start: 20171202

REACTIONS (3)
  - Insomnia [Unknown]
  - Fatigue [Unknown]
  - Dyspnoea [Unknown]
